FAERS Safety Report 5613400-9 (Version None)
Quarter: 2008Q1

REPORT INFORMATION
  Report Type: 
  Country: None (occurrence: None)
  Receive Date: 20080129
  Receipt Date: 20080114
  Transmission Date: 20080703
  Serious: Yes (Death, Congenital Anomaly)
  Sender: FDA-Public Use
  Company Number: S07-NOR-03383-01

PATIENT
  Sex: Female

DRUGS (4)
  1. ESCITALOPRAM [Suspect]
     Indication: BIPOLAR I DISORDER
     Dosage: 10 MG QD
  2. VENTOLIN [Suspect]
     Indication: ASTHMA
  3. LITHIONIT(LITHIUM SULFATE) [Suspect]
     Indication: BIPOLAR I DISORDER
     Dosage: 83 MG BID
  4. BECOTIDE NASAL(BECLOMETASONE DIPROPIONATE) [Suspect]
     Indication: ASTHMA

REACTIONS (6)
  - ABORTION INDUCED [None]
  - CONGENITAL HAND MALFORMATION [None]
  - DRUG EXPOSURE DURING PREGNANCY [None]
  - OLIGOHYDRAMNIOS [None]
  - PULMONARY MALFORMATION [None]
  - RENAL APLASIA [None]
